FAERS Safety Report 13839979 (Version 1)
Quarter: 2017Q3

REPORT INFORMATION
  Report Type: Spontaneous
  Country: GB (occurrence: GB)
  Receive Date: 20170807
  Receipt Date: 20170807
  Transmission Date: 20171127
  Serious: Yes (Other)
  Sender: FDA-Public Use
  Company Number: GB-TEVA-791786ACC

PATIENT
  Age: 67 Year
  Sex: Female
  Weight: 61.68 kg

DRUGS (2)
  1. CETIRIZINE DIHYDROCHLORIDE [Suspect]
     Active Substance: CETIRIZINE HYDROCHLORIDE
     Indication: HYPERSENSITIVITY
     Dosage: 1 DOSAGE FORMS DAILY;
     Route: 048
     Dates: start: 201703, end: 201703
  2. DICLOFENAC [Concomitant]
     Active Substance: DICLOFENAC

REACTIONS (1)
  - Sunburn [Recovered/Resolved with Sequelae]

NARRATIVE: CASE EVENT DATE: 201703
